FAERS Safety Report 5719510-X (Version None)
Quarter: 2008Q2

REPORT INFORMATION
  Report Type: 
  Country: None (occurrence: None)
  Receive Date: 20080428
  Receipt Date: 20070801
  Transmission Date: 20081010
  Serious: No
  Sender: FDA-Public Use
  Company Number: A0664829A

PATIENT
  Sex: Female
  Weight: 63.6 kg

DRUGS (5)
  1. AMERGE [Suspect]
     Indication: MIGRAINE
     Dosage: 2.5MG AS REQUIRED
     Route: 048
     Dates: start: 19990101
  2. NAPROXIN [Concomitant]
  3. ZOFRAN [Concomitant]
  4. UNKNOWN MEDICATION [Concomitant]
  5. ASPIRIN [Concomitant]

REACTIONS (3)
  - BONE PAIN [None]
  - MUSCLE SPASMS [None]
  - PARAESTHESIA [None]
